FAERS Safety Report 8399681-X (Version None)
Quarter: 2012Q2

REPORT INFORMATION
  Report Type: 
  Country: None (occurrence: None)
  Receive Date: 20120531
  Receipt Date: 20120521
  Transmission Date: 20120825
  Serious: Yes (Hospitalization)
  Sender: FDA-Public Use
  Company Number: JP-JNJFOC-20120310976

PATIENT
  Sex: Female
  Weight: 41 kg

DRUGS (6)
  1. PREDNISOLONE [Suspect]
     Indication: PRODUCT USED FOR UNKNOWN INDICATION
     Route: 048
  2. SIMPONI [Suspect]
     Indication: RHEUMATOID ARTHRITIS
     Route: 058
     Dates: start: 20120208
  3. SIMPONI [Suspect]
     Route: 058
     Dates: start: 20120111
  4. METHOTREXATE [Suspect]
     Route: 048
     Dates: start: 20120111, end: 20120203
  5. METHOTREXATE [Suspect]
     Route: 048
     Dates: start: 20120308
  6. METHOTREXATE [Suspect]
     Indication: RHEUMATOID ARTHRITIS
     Route: 048
     Dates: start: 20120208, end: 20120224

REACTIONS (1)
  - HERPES ZOSTER [None]
